FAERS Safety Report 5159096-4 (Version None)
Quarter: 2006Q4

REPORT INFORMATION
  Report Type: 
  Country: None (occurrence: None)
  Receive Date: 20061128
  Receipt Date: 20061110
  Transmission Date: 20070319
  Serious: Yes (Hospitalization)
  Sender: FDA-Public Use
  Company Number: FR-BOEHRINGER INGELHEIM GMBH, GERMANY-2006-FF-01241FF

PATIENT
  Age: 75 Year
  Sex: Male

DRUGS (11)
  1. MICARDIS [Suspect]
     Indication: ESSENTIAL HYPERTENSION
     Route: 048
  2. DEBRIDAT [Concomitant]
  3. DIOSMINE [Concomitant]
  4. BROMAZEPAM [Concomitant]
  5. NEXIUM [Concomitant]
  6. LOPRESSOR [Concomitant]
     Indication: ESSENTIAL HYPERTENSION
     Route: 048
  7. SPASMINE [Concomitant]
  8. ACETAMINOPHEN [Concomitant]
  9. ZOLPIDEM TARTRATE [Concomitant]
  10. TENSTATEN [Concomitant]
  11. PYOSTACINE [Concomitant]

REACTIONS (1)
  - PUSTULAR PSORIASIS [None]
